FAERS Safety Report 6279209-0 (Version None)
Quarter: 2009Q3

REPORT INFORMATION
  Report Type: 
  Country: None (occurrence: None)
  Receive Date: 20090723
  Receipt Date: 20080902
  Transmission Date: 20100115
  Serious: No
  Sender: FDA-Public Use
  Company Number: US-AMGEN-KDL305504

PATIENT
  Sex: Female

DRUGS (1)
  1. EPOGEN [Suspect]
     Indication: DIALYSIS
     Route: 042

REACTIONS (7)
  - ARTHRITIS [None]
  - EATING DISORDER [None]
  - EYELID DISORDER [None]
  - EYELID FUNCTION DISORDER [None]
  - HAEMOGLOBIN ABNORMAL [None]
  - HEADACHE [None]
  - PRURITUS [None]
